FAERS Safety Report 5992981-X (Version None)
Quarter: 2008Q4

REPORT INFORMATION
  Report Type: 
  Country: None (occurrence: None)
  Receive Date: 20081210
  Receipt Date: 20081210
  Transmission Date: 20090506
  Serious: Yes (Other)
  Sender: FDA-Public Use
  Company Number: None

PATIENT
  Age: 34 Year
  Sex: Female
  Weight: 70.7611 kg

DRUGS (2)
  1. PROAIR HFA [Suspect]
     Indication: ASTHMA EXERCISE INDUCED
     Dosage: INHALER AS NEEDED INHAL
     Route: 055
  2. PROAIR HFA [Suspect]
     Indication: HYPERSENSITIVITY
     Dosage: INHALER AS NEEDED INHAL
     Route: 055

REACTIONS (3)
  - DEVICE MALFUNCTION [None]
  - DRUG EFFECT DECREASED [None]
  - PRODUCT QUALITY ISSUE [None]
